FAERS Safety Report 13333064 (Version 2)
Quarter: 2017Q2

REPORT INFORMATION
  Report Type: Spontaneous
  Country: US (occurrence: US)
  Receive Date: 20170313
  Receipt Date: 20170612
  Transmission Date: 20170830
  Serious: Yes (Life-Threatening, Hospitalization, Other)
  Sender: FDA-Public Use
  Company Number: US-MYLANLABS-2017M1015579

PATIENT

DRUGS (2)
  1. CLOZAPINE. [Suspect]
     Active Substance: CLOZAPINE
     Indication: BIPOLAR DISORDER
     Dosage: 800 MG, UNK
  2. CLOZAPINE. [Suspect]
     Active Substance: CLOZAPINE
     Indication: HALLUCINATION, AUDITORY
     Dosage: 500 MG, HS

REACTIONS (8)
  - Dehydration [Recovering/Resolving]
  - Pneumonia aspiration [Recovering/Resolving]
  - Salivary hypersecretion [Unknown]
  - Product use in unapproved indication [Unknown]
  - Vomiting [Unknown]
  - Middle insomnia [Unknown]
  - Drooling [Unknown]
  - Choking sensation [Unknown]
